FAERS Safety Report 12934797 (Version 1)
Quarter: 2016Q4

REPORT INFORMATION
  Report Type: Spontaneous
  Country: CO (occurrence: CO)
  Receive Date: 20161112
  Receipt Date: 20161112
  Transmission Date: 20170207
  Serious: Yes (Death, Hospitalization, Other)
  Sender: FDA-Public Use
  Company Number: CO-BAXTER-2016BAX056676

PATIENT
  Age: 57 Year
  Sex: Male

DRUGS (1)
  1. DIANEAL PD-2 WITH DEXTROSE [Suspect]
     Active Substance: CALCIUM CHLORIDE\DEXTROSE\MAGNESIUM CHLORIDE\SODIUM CHLORIDE\SODIUM LACTATE
     Indication: PERITONEAL DIALYSIS
     Route: 033
     Dates: end: 20161031

REACTIONS (4)
  - Hip fracture [Unknown]
  - Peritonitis bacterial [Recovered/Resolved]
  - Cardio-respiratory arrest [Fatal]
  - Fall [Unknown]

NARRATIVE: CASE EVENT DATE: 20161006
